FAERS Safety Report 7355235-5 (Version None)
Quarter: 2011Q1

REPORT INFORMATION
  Report Type: 
  Country: None (occurrence: None)
  Receive Date: 20110316
  Receipt Date: 20110311
  Transmission Date: 20110831
  Serious: Yes (Other)
  Sender: FDA-Public Use
  Company Number: US-PFIZER INC-2011054492

PATIENT
  Sex: Female

DRUGS (5)
  1. JANUVIA [Concomitant]
     Dosage: UNK
  2. NEXIUM [Concomitant]
     Dosage: UNK
  3. LANTUS [Concomitant]
     Dosage: UNK
  4. ZOLOFT [Suspect]
     Dosage: 100 MG, 1X/DAY
     Route: 048
  5. ADVAIR DISKUS 100/50 [Concomitant]
     Dosage: UNK

REACTIONS (2)
  - TYPE 2 DIABETES MELLITUS [None]
  - DEPRESSION [None]
